FAERS Safety Report 24322854 (Version 1)
Quarter: 2024Q3

REPORT INFORMATION
  Report Type: Spontaneous
  Country: US (occurrence: US)
  Receive Date: 20240916
  Receipt Date: 20240916
  Transmission Date: 20241017
  Serious: Yes (Hospitalization, Other)
  Sender: SANDOZ
  Company Number: US-SANDOZ-SDZ2024US079732

PATIENT
  Sex: Female

DRUGS (6)
  1. DICLOFENAC SODIUM [Suspect]
     Active Substance: DICLOFENAC\DICLOFENAC SODIUM
     Indication: Product used for unknown indication
     Dosage: 750 MG, BID
     Route: 048
  2. OXCARBAZEPINE [Suspect]
     Active Substance: OXCARBAZEPINE
     Indication: Product used for unknown indication
     Dosage: 1500 MG, QD
     Route: 048
  3. TRIAMCINOLONE ACETONIDE [Suspect]
     Active Substance: TRIAMCINOLONE ACETONIDE
     Indication: Product used for unknown indication
     Dosage: 10 MG
     Route: 030
  4. TRIAMCINOLONE ACETONIDE [Suspect]
     Active Substance: TRIAMCINOLONE ACETONIDE
     Dosage: 20 MG
     Route: 030
  5. TRIAMCINOLONE ACETONIDE [Suspect]
     Active Substance: TRIAMCINOLONE ACETONIDE
     Dosage: 40 MG
     Route: 030
  6. ZOFRAN [Suspect]
     Active Substance: ONDANSETRON HYDROCHLORIDE
     Indication: Nausea
     Dosage: UNK
     Route: 065

REACTIONS (17)
  - Suicidal ideation [Unknown]
  - Toothache [Not Recovered/Not Resolved]
  - Back pain [Unknown]
  - Depression [Unknown]
  - Vitamin D deficiency [Unknown]
  - Nausea [Unknown]
  - Vomiting [Unknown]
  - Osteoarthritis [Unknown]
  - Blood glucose increased [Unknown]
  - Blood thyroid stimulating hormone decreased [Unknown]
  - Thyroxine increased [Unknown]
  - Glycosylated haemoglobin increased [Unknown]
  - Low density lipoprotein decreased [Unknown]
  - Transferrin saturation decreased [Unknown]
  - Gait disturbance [Unknown]
  - Vertigo [Unknown]
  - Aspartate aminotransferase increased [Unknown]
